FAERS Safety Report 11514413 (Version 1)
Quarter: 2015Q3

REPORT INFORMATION
  Report Type: Spontaneous
  Country: ES (occurrence: ES)
  Receive Date: 20150916
  Receipt Date: 20150916
  Transmission Date: 20151125
  Serious: Yes (Other)
  Sender: FDA-Public Use
  Company Number: ES-PFIZER INC-2015309651

PATIENT
  Age: 46 Year
  Sex: Male

DRUGS (3)
  1. SOGILEN [Suspect]
     Active Substance: CABERGOLINE
     Indication: PROLACTINOMA
     Dosage: 2 MG, WEEKLY (DIVIDED INTO THREE TIMES PER WEEK)
     Route: 048
     Dates: start: 20150326
  2. SOGILEN [Suspect]
     Active Substance: CABERGOLINE
     Indication: HYPERPROLACTINAEMIA
  3. TESTEX [Concomitant]
     Indication: HYPOGONADISM
     Dosage: 250 MG, EVERY TWO WEEKS
     Dates: start: 20141203, end: 20150701

REACTIONS (5)
  - Malaise [Not Recovered/Not Resolved]
  - Eye pain [Unknown]
  - Headache [Unknown]
  - Eyelid ptosis [Not Recovered/Not Resolved]
  - Photophobia [Not Recovered/Not Resolved]

NARRATIVE: CASE EVENT DATE: 20150415
